FAERS Safety Report 4938429-5 (Version None)
Quarter: 2006Q1

REPORT INFORMATION
  Report Type: 
  Country: None (occurrence: None)
  Receive Date: 20060306
  Receipt Date: 20060216
  Transmission Date: 20060701
  Serious: Yes (Hospitalization)
  Sender: FDA-Public Use
  Company Number: 2005BI021676

PATIENT
  Age: 48 Year
  Sex: Female
  Weight: 64.8644 kg

DRUGS (8)
  1. AVONEX [Suspect]
     Indication: MULTIPLE SCLEROSIS
     Dosage: 30 UG; QW; IM
     Route: 030
     Dates: start: 19990401, end: 20050901
  2. AVONEX [Suspect]
     Indication: MULTIPLE SCLEROSIS
     Dosage: 30 UG; QW; IM
     Route: 030
     Dates: start: 20050901
  3. AVAPRO [Concomitant]
  4. TOPROL [Concomitant]
  5. NORVASC [Concomitant]
  6. PREVACID [Concomitant]
  7. ZOCOR [Concomitant]
  8. DIFLUCAN [Concomitant]

REACTIONS (21)
  - ANAEMIA OF CHRONIC DISEASE [None]
  - BLOOD POTASSIUM DECREASED [None]
  - COLITIS [None]
  - CROHN'S DISEASE [None]
  - DEHYDRATION [None]
  - DEPRESSION [None]
  - DIARRHOEA [None]
  - DYSPEPSIA [None]
  - DYSPHONIA [None]
  - FATIGUE [None]
  - HYPOTENSION [None]
  - INFLUENZA LIKE ILLNESS [None]
  - INJECTION SITE PAIN [None]
  - INTESTINAL OBSTRUCTION [None]
  - MYALGIA [None]
  - NASOPHARYNGITIS [None]
  - PAIN [None]
  - SYNCOPE [None]
  - URINARY INCONTINENCE [None]
  - VIRAL INFECTION [None]
  - VITAMIN D DEFICIENCY [None]
